FAERS Safety Report 5029265-2 (Version None)
Quarter: 2006Q2

REPORT INFORMATION
  Report Type: 
  Country: None (occurrence: None)
  Receive Date: 20060616
  Receipt Date: 20060616
  Transmission Date: 20061013
  Serious: No
  Sender: FDA-Public Use
  Company Number: None

PATIENT
  Age: 46 Year
  Sex: Male
  Weight: 104.3273 kg

DRUGS (3)
  1. PREDNISOLONE ACETATE [Suspect]
     Indication: DISEASE RECURRENCE
     Dosage: 1 DROP EVERY 1 INITIALLY TOP
     Route: 061
     Dates: start: 20060612, end: 20060615
  2. PREDNISOLONE ACETATE [Suspect]
     Indication: IRITIS
     Dosage: 1 DROP EVERY 1 INITIALLY TOP
     Route: 061
     Dates: start: 20060612, end: 20060615
  3. CYCLOPENTOLATE HYDROCHLORIDE [Concomitant]

REACTIONS (4)
  - DRUG INEFFECTIVE [None]
  - IRITIS [None]
  - PHARMACEUTICAL PRODUCT COMPLAINT [None]
  - THERAPEUTIC RESPONSE UNEXPECTED WITH DRUG SUBSTITUTION [None]
